FAERS Safety Report 25441186 (Version 2)
Quarter: 2025Q4

REPORT INFORMATION
  Report Type: Spontaneous
  Country: US (occurrence: None)
  Receive Date: 20250616
  Receipt Date: 20251024
  Transmission Date: 20260117
  Serious: No
  Sender: UCB
  Company Number: US-UCBSA-2025014663

PATIENT
  Weight: 82.54 kg

DRUGS (1)
  1. BIMZELX [Suspect]
     Active Substance: BIMEKIZUMAB-BKZX
     Indication: Hidradenitis
     Dosage: 320 MILLIGRAM, EV 2 WEEKS(QOW)

REACTIONS (6)
  - Headache [Unknown]
  - Back pain [Unknown]
  - Hidradenitis [Unknown]
  - Condition aggravated [Unknown]
  - Syringe issue [Unknown]
  - Incorrect dose administered [Unknown]
